FAERS Safety Report 5158669-2 (Version None)
Quarter: 2006Q4

REPORT INFORMATION
  Report Type: 
  Country: None (occurrence: None)
  Receive Date: 20061117
  Receipt Date: 20061108
  Transmission Date: 20070319
  Serious: Yes (Life-Threatening, Hospitalization)
  Sender: FDA-Public Use
  Company Number: FRWYE288709SEP03

PATIENT
  Age: 47 Year
  Sex: Male

DRUGS (9)
  1. TACROLIMUS, CONTROL FOR SIROLIMUS (TACROLIMUS, CONTROL FOR SIROLIMUS, [Suspect]
     Indication: PROPHYLAXIS AGAINST TRANSPLANT REJECTION
     Dosage: 4 MG 1X PER 1 DAY; ORAL
     Route: 048
     Dates: start: 20021229, end: 20030903
  2. CELLCEPT [Suspect]
     Indication: PROPHYLAXIS AGAINST TRANSPLANT REJECTION
     Dosage: 1G 1X PER 1 DAY; ORAL
     Route: 048
     Dates: start: 20021229
  3. PREDNISONE [Concomitant]
  4. OMEPRAZOLE [Concomitant]
  5. PROPRANOLOL [Concomitant]
  6. EUCALCIC (CALCIUM CARBONATE) [Concomitant]
  7. PRAVASTATIN [Concomitant]
  8. ASPEGIC 1000 [Concomitant]
  9. ZELTREX (VALACICLOVIR) [Concomitant]

REACTIONS (12)
  - AGITATION [None]
  - BRAIN OEDEMA [None]
  - CHROMATOPSIA [None]
  - CONDITION AGGRAVATED [None]
  - HAEMOLYTIC URAEMIC SYNDROME [None]
  - HEART RATE DECREASED [None]
  - HYPERREFLEXIA [None]
  - HYPERTENSION [None]
  - MENINGORRHAGIA [None]
  - NYSTAGMUS [None]
  - PLATELET COUNT DECREASED [None]
  - PULMONARY OEDEMA [None]
